FAERS Safety Report 10440357 (Version 2)
Quarter: 2014Q3

REPORT INFORMATION
  Report Type: Spontaneous
  Country: IN (occurrence: IN)
  Receive Date: 20140909
  Receipt Date: 20140915
  Transmission Date: 20150326
  Serious: Yes (Life-Threatening, Other)
  Sender: FDA-Public Use
  Company Number: IN-RANBAXY-2014RR-85177

PATIENT
  Age: 18 Year
  Sex: Female

DRUGS (1)
  1. AMLODIPINE/ATENOLOL [Suspect]
     Active Substance: AMLODIPINE BESYLATE\ATENOLOL
     Indication: PRODUCT USED FOR UNKNOWN INDICATION
     Dosage: 17 TABLETS (85MG/850MG)
     Route: 065

REACTIONS (6)
  - Metabolic acidosis [Recovered/Resolved]
  - Overdose [Recovered/Resolved]
  - Renal failure acute [Recovered/Resolved]
  - Acute respiratory distress syndrome [Recovered/Resolved]
  - Shock [Recovered/Resolved]
  - Suicide attempt [Recovered/Resolved]
